FAERS Safety Report 18912729 (Version 1)
Quarter: 2021Q1

REPORT INFORMATION
  Report Type: Spontaneous
  Country: CA (occurrence: CA)
  Receive Date: 20210219
  Receipt Date: 20210219
  Transmission Date: 20210420
  Serious: Yes (Other)
  Sender: FDA-Public Use
  Company Number: CA-ROCHE-2771187

PATIENT
  Age: 62 Year
  Sex: Male

DRUGS (1)
  1. RITUXAN [Suspect]
     Active Substance: RITUXIMAB
     Indication: RHEUMATOID ARTHRITIS
     Route: 042

REACTIONS (6)
  - Fatigue [Unknown]
  - Blood pressure increased [Unknown]
  - Visual impairment [Unknown]
  - Flushing [Unknown]
  - Blood pressure abnormal [Unknown]
  - Pulse abnormal [Unknown]
